FAERS Safety Report 6376667-8 (Version None)
Quarter: 2009Q3

REPORT INFORMATION
  Report Type: 
  Country: None (occurrence: None)
  Receive Date: 20090922
  Receipt Date: 20090922
  Transmission Date: 20100115
  Serious: Yes (Death)
  Sender: FDA-Public Use
  Company Number: None

PATIENT
  Age: 69 Year
  Sex: Female
  Weight: 68.0396 kg

DRUGS (3)
  1. LEVAQUIN [Suspect]
     Indication: INFECTION
     Dosage: 500 MG 1 A DAY PO
     Route: 048
     Dates: start: 20070831, end: 20070907
  2. ANTRIPTALINE 100 MG [Suspect]
     Indication: PAIN
     Dosage: 100 MG 1 A NIGHT PO
     Route: 048
     Dates: start: 19850515, end: 20070907
  3. ANTRIPTALINE 100 MG [Suspect]
     Indication: SLEEP DISORDER
     Dosage: 100 MG 1 A NIGHT PO
     Route: 048
     Dates: start: 19850515, end: 20070907

REACTIONS (2)
  - INSOMNIA [None]
  - PAIN [None]
